FAERS Safety Report 5799140-4 (Version None)
Quarter: 2008Q3

REPORT INFORMATION
  Report Type: 
  Country: None (occurrence: None)
  Receive Date: 20080702
  Receipt Date: 20080626
  Transmission Date: 20090109
  Serious: Yes (Other)
  Sender: FDA-Public Use
  Company Number: CL-PFIZER INC-2008045103

PATIENT
  Age: 49 Year
  Sex: Male

DRUGS (2)
  1. CELEBRA [Suspect]
     Indication: TENDONITIS
     Route: 048
     Dates: start: 20080523, end: 20080525
  2. CIDOTEN [Concomitant]
     Dates: start: 20080523, end: 20080523

REACTIONS (5)
  - GASTRITIS [None]
  - HICCUPS [None]
  - MUSCLE SPASMS [None]
  - NEURITIS [None]
  - SUFFOCATION FEELING [None]
